FAERS Safety Report 4652983-2 (Version None)
Quarter: 2005Q2

REPORT INFORMATION
  Report Type: 
  Country: None (occurrence: None)
  Receive Date: 20050503
  Receipt Date: 20050426
  Transmission Date: 20051028
  Serious: Yes (Death)
  Sender: FDA-Public Use
  Company Number: USA-2005-0020011

PATIENT
  Age: 98 Year
  Sex: Female

DRUGS (1)
  1. COLACE LIQUID 10 MG/ML (DOCUSATE SODIUM) LIQUID [Suspect]
     Indication: CONSTIPATION
     Dosage: ORAL
     Route: 048

REACTIONS (1)
  - DEATH [None]
